FAERS Safety Report 25463372 (Version 1)
Quarter: 2025Q2

REPORT INFORMATION
  Report Type: Spontaneous
  Country: GB (occurrence: GB)
  Receive Date: 20250620
  Receipt Date: 20250620
  Transmission Date: 20250717
  Serious: Yes (Death, Hospitalization, Other)
  Sender: VERTEX
  Company Number: None

PATIENT
  Age: 41 Year
  Sex: Male
  Weight: 95 kg

DRUGS (11)
  1. ELEXACAFTOR\IVACAFTOR\TEZACAFTOR [Suspect]
     Active Substance: ELEXACAFTOR\IVACAFTOR\TEZACAFTOR
     Indication: Cystic fibrosis
     Dosage: IVA/TEZA/ELEXA; EACH MORNING
     Route: 048
     Dates: start: 20200313, end: 202501
  2. ELEXACAFTOR\IVACAFTOR\TEZACAFTOR [Suspect]
     Active Substance: ELEXACAFTOR\IVACAFTOR\TEZACAFTOR
     Dosage: REDUCED TO HALF DOSE
     Route: 048
     Dates: start: 202501, end: 202504
  3. KALYDECO [Suspect]
     Active Substance: IVACAFTOR
     Indication: Cystic fibrosis
     Route: 048
     Dates: start: 20200313
  4. METFORMIN [Concomitant]
     Active Substance: METFORMIN HYDROCHLORIDE
     Indication: Diabetes mellitus
  5. MOMETASONE [Concomitant]
     Active Substance: MOMETASONE
     Indication: Rhinitis allergic
  6. SODIUM CHLORIDE [Concomitant]
     Active Substance: SODIUM CHLORIDE
     Indication: Cystic fibrosis
  7. URSODIOL [Concomitant]
     Active Substance: URSODIOL
     Indication: Cystic fibrosis hepatic disease
  8. THEOPHYLLINE ANHYDROUS [Concomitant]
     Active Substance: THEOPHYLLINE ANHYDROUS
     Indication: Cystic fibrosis lung
  9. OMEPRAZOLE [Concomitant]
     Active Substance: OMEPRAZOLE
     Indication: Gastrooesophageal reflux disease
  10. LANTUS [Concomitant]
     Active Substance: INSULIN GLARGINE
     Indication: Cystic fibrosis pancreatic
  11. APIDRA [Concomitant]
     Active Substance: INSULIN GLULISINE
     Indication: Cystic fibrosis pancreatic

REACTIONS (7)
  - Liver injury [Fatal]
  - Ascites [Not Recovered/Not Resolved]
  - Jaundice [Not Recovered/Not Resolved]
  - Lower respiratory tract infection [Unknown]
  - Confusional state [Not Recovered/Not Resolved]
  - Pneumonia [Not Recovered/Not Resolved]
  - Malaise [Not Recovered/Not Resolved]

NARRATIVE: CASE EVENT DATE: 20250120
